FAERS Safety Report 21388040 (Version 1)
Quarter: 2022Q3

REPORT INFORMATION
  Report Type: Spontaneous
  Country: US (occurrence: US)
  Receive Date: 20220928
  Receipt Date: 20220928
  Transmission Date: 20221027
  Serious: No
  Sender: FDA-Public Use
  Company Number: US-SA-SAC20220923000582

PATIENT
  Sex: Female

DRUGS (3)
  1. DUPIXENT [Suspect]
     Active Substance: DUPILUMAB
     Indication: Asthma
     Dosage: 300 MG, QOW
     Route: 058
     Dates: start: 20210730
  2. THYROGEN [Concomitant]
     Active Substance: THYROTROPIN ALFA
  3. ZINC [Concomitant]
     Active Substance: ZINC

REACTIONS (2)
  - Arthritis [Unknown]
  - Impaired quality of life [Unknown]
